FAERS Safety Report 5713200-5 (Version None)
Quarter: 2008Q2

REPORT INFORMATION
  Report Type: 
  Country: None (occurrence: None)
  Receive Date: 20080422
  Receipt Date: 19950920
  Transmission Date: 20081010
  Serious: Yes (Death)
  Sender: FDA-Public Use
  Company Number: ZA-ROCHE-51585

PATIENT
  Sex: Male
  Weight: 42 kg

DRUGS (4)
  1. ISOTRETINOIN [Suspect]
     Route: 048
     Dates: start: 19950829, end: 19950918
  2. INTERFERON ALFA-2A [Suspect]
     Route: 030
     Dates: start: 19950901, end: 19950918
  3. INTERFERON ALFA-2A [Suspect]
     Route: 030
     Dates: start: 19950829, end: 19950831
  4. MORPHINE SUL INJ [Concomitant]
     Indication: PAIN
     Route: 048
     Dates: start: 19950828, end: 19950918

REACTIONS (2)
  - HAEMATEMESIS [None]
  - PYREXIA [None]
